FAERS Safety Report 9885321 (Version 1)
Quarter: 2014Q1

REPORT INFORMATION
  Report Type: Spontaneous
  Country: US (occurrence: US)
  Receive Date: 20140210
  Receipt Date: 20140210
  Transmission Date: 20141002
  Serious: No
  Sender: FDA-Public Use
  Company Number: US-PFIZER INC-2014037357

PATIENT
  Age: 52 Year
  Sex: Female
  Weight: 58.96 kg

DRUGS (3)
  1. EFFEXOR XR [Suspect]
     Indication: ATTENTION DEFICIT/HYPERACTIVITY DISORDER
     Dosage: 150 MG, 1X/DAY
  2. EFFEXOR XR [Suspect]
     Indication: DEPRESSION
  3. SYNTHROID [Concomitant]
     Indication: THYROID DISORDER
     Dosage: 100 MG, 1X/DAY

REACTIONS (3)
  - Nightmare [Unknown]
  - Hallucination [Unknown]
  - Dizziness [Unknown]
